FAERS Safety Report 7534240-X (Version None)
Quarter: 2011Q2

REPORT INFORMATION
  Report Type: 
  Country: None (occurrence: None)
  Receive Date: 20110608
  Receipt Date: 20070123
  Transmission Date: 20111010
  Serious: Yes (Other)
  Sender: FDA-Public Use
  Company Number: PHHO2006CL21415

PATIENT
  Age: 73 Year

DRUGS (4)
  1. VALSARTAN  AND HYDROCHLOROTHIAZIDE [Suspect]
     Indication: HYPERTENSION
     Dosage: 160/25 MG
     Route: 048
  2. ACETAMINOPHEN [Concomitant]
  3. OMEPRAZOLE [Concomitant]
  4. TRAMADOL HCL [Concomitant]

REACTIONS (1)
  - BONE NEOPLASM [None]
